FAERS Safety Report 5773058-5 (Version None)
Quarter: 2008Q2

REPORT INFORMATION
  Report Type: 
  Country: None (occurrence: None)
  Receive Date: 20080611
  Receipt Date: 20080604
  Transmission Date: 20081010
  Serious: Yes (Hospitalization)
  Sender: FDA-Public Use
  Company Number: 2008014478

PATIENT
  Age: 49 Year
  Sex: Female
  Weight: 56.2 kg

DRUGS (2)
  1. BENADRYL [Suspect]
     Indication: HYPERSENSITIVITY
     Dosage: 1 TABLET AS NEEDED,ORAL
     Route: 048
     Dates: start: 20080527
  2. METHYLPREDNISOLONE [Concomitant]

REACTIONS (2)
  - COMA [None]
  - LOSS OF CONSCIOUSNESS [None]
